FAERS Safety Report 11523186 (Version 2)
Quarter: 2015Q4

REPORT INFORMATION
  Report Type: Spontaneous
  Country: US (occurrence: US)
  Receive Date: 20150918
  Receipt Date: 20151026
  Transmission Date: 20160304
  Serious: Yes (Hospitalization)
  Sender: FDA-Public Use
  Company Number: US-CELGENEUS-USA-2015092722

PATIENT
  Age: 48 Year
  Sex: Female

DRUGS (2)
  1. THALOMID [Suspect]
     Active Substance: THALIDOMIDE
     Indication: OFF LABEL USE
     Route: 048
     Dates: start: 201509
  2. THALOMID [Suspect]
     Active Substance: THALIDOMIDE
     Indication: ERYTHEMA MULTIFORME
     Dosage: 3 GRAM
     Route: 048
     Dates: start: 20150115

REACTIONS (1)
  - Herpes zoster [Recovered/Resolved with Sequelae]

NARRATIVE: CASE EVENT DATE: 20150910
